FAERS Safety Report 7448295-4 (Version None)
Quarter: 2011Q2

REPORT INFORMATION
  Report Type: 
  Country: None (occurrence: None)
  Receive Date: 20110429
  Receipt Date: 20110414
  Transmission Date: 20111010
  Serious: Yes (Hospitalization)
  Sender: FDA-Public Use
  Company Number: PHHY2011NL34750

PATIENT
  Sex: Female
  Weight: 59 kg

DRUGS (11)
  1. VALPROATE SODIUM [Suspect]
     Dosage: 500 MG, UNK
     Dates: end: 20110316
  2. TRUVADA [Suspect]
     Indication: HIV INFECTION
     Dosage: 1 DF, QD
     Route: 048
     Dates: start: 20110314, end: 20110316
  3. VALPROATE SODIUM [Suspect]
     Indication: BIPOLAR DISORDER
     Dosage: 150 MG, UNK
     Dates: start: 20110214
  4. TEMAZEPAM [Concomitant]
     Dosage: 20 MG, QD
     Dates: start: 20110204
  5. VALPROATE SODIUM [Suspect]
     Dosage: 300 MG, UNK
  6. TAVEGYL [Suspect]
     Indication: RASH
     Dosage: 1 MG, BID
     Route: 048
     Dates: start: 20110313, end: 20110316
  7. REYATAZ [Suspect]
     Indication: HIV INFECTION
     Dosage: 300 MG, QD
     Dates: start: 20110314, end: 20110316
  8. CISORDINOL [Concomitant]
     Dosage: 2 MG, BID
     Dates: start: 20110228
  9. CALCICHEW [Concomitant]
     Dosage: 1000 MG, UNK
     Dates: start: 20110201
  10. OXAZEPAM [Concomitant]
     Dosage: 10 MG, TID
     Route: 048
     Dates: start: 20110204
  11. NORVIR [Suspect]
     Dosage: 100 MG, UNK
     Dates: start: 20110314, end: 20110316

REACTIONS (6)
  - DRUG RASH WITH EOSINOPHILIA AND SYSTEMIC SYMPTOMS [None]
  - PYREXIA [None]
  - EOSINOPHILIA [None]
  - RASH GENERALISED [None]
  - FACE OEDEMA [None]
  - HEPATIC ENZYME ABNORMAL [None]
